FAERS Safety Report 6642941-0 (Version None)
Quarter: 2010Q1

REPORT INFORMATION
  Report Type: 
  Country: None (occurrence: None)
  Receive Date: 20100319
  Receipt Date: 20100309
  Transmission Date: 20100710
  Serious: Yes (Disabling)
  Sender: FDA-Public Use
  Company Number: FR-JNJFOC-20100303821

PATIENT
  Sex: Male

DRUGS (13)
  1. HALDOL [Suspect]
     Indication: DRUG USE FOR UNKNOWN INDICATION
     Route: 065
  2. HALDOL [Suspect]
     Route: 048
  3. TERCIAN [Concomitant]
     Route: 065
  4. LYRICA [Concomitant]
     Route: 065
  5. LYSANXIA [Concomitant]
     Route: 065
  6. LEPTICUR [Concomitant]
     Route: 065
  7. NOCTRAN [Concomitant]
     Route: 065
  8. NEXIUM [Concomitant]
     Route: 065
  9. LOXAPAC [Concomitant]
     Route: 065
  10. ZYPREXA [Concomitant]
     Route: 065
  11. EFFERALGAN [Concomitant]
     Route: 065
  12. CODEINE SUL TAB [Concomitant]
     Route: 065
  13. XANAX [Concomitant]
     Route: 065

REACTIONS (3)
  - MUSCLE SPASMS [None]
  - PAIN IN EXTREMITY [None]
  - TREATMENT NONCOMPLIANCE [None]
